FAERS Safety Report 9160694 (Version 2)
Quarter: 2013Q2

REPORT INFORMATION
  Report Type: Report from Study
  Country: BR (occurrence: BR)
  Receive Date: 20130313
  Receipt Date: 20130405
  Transmission Date: 20140414
  Serious: Yes (Other)
  Sender: FDA-Public Use
  Company Number: BR-ABBOTT-13P-020-1060888-00

PATIENT
  Age: 61 Year
  Sex: Female
  Weight: 85 kg

DRUGS (18)
  1. HUMIRA [Suspect]
     Indication: RHEUMATOID ARTHRITIS
     Route: 058
     Dates: start: 20121027, end: 20130302
  2. HUMIRA [Suspect]
     Dates: start: 20130316
  3. METHOTREXATE [Suspect]
     Indication: PRODUCT USED FOR UNKNOWN INDICATION
     Dosage: SUNDAY
     Route: 048
     Dates: start: 200208
  4. PREDNISONE [Concomitant]
     Indication: PAIN
     Route: 048
     Dates: start: 200208
  5. NAPROXEN [Concomitant]
     Indication: PRODUCT USED FOR UNKNOWN INDICATION
     Route: 048
     Dates: start: 200208
  6. OMEPRAZOLE [Concomitant]
     Indication: GASTRIC DISORDER
     Dosage: FASTING
     Route: 048
     Dates: start: 200208
  7. FOLIC ACID [Concomitant]
     Indication: PRODUCT USED FOR UNKNOWN INDICATION
     Route: 048
     Dates: start: 200208
  8. MODURETIC [Concomitant]
     Indication: DIURETIC THERAPY
     Route: 048
     Dates: start: 200208
  9. LOSARTAN POTASSIUM [Concomitant]
     Indication: BLOOD PRESSURE
     Route: 048
     Dates: start: 200208
  10. ATRAZ (?) [Concomitant]
     Indication: BLOOD PRESSURE
     Route: 048
     Dates: start: 200208
  11. PONDERA [Concomitant]
     Indication: ANTIDEPRESSANT THERAPY
     Route: 048
     Dates: start: 200808
  12. BROMAZEPAM [Concomitant]
     Indication: SLEEP DISORDER THERAPY
     Dosage: AT NIGHT
     Route: 048
     Dates: start: 200808
  13. CHELATED CALCIUM + VITAMIN B3 [Concomitant]
     Indication: OSTEOPOROSIS
     Route: 048
     Dates: start: 201109
  14. PROTOS [Concomitant]
     Indication: CALCIUM METABOLISM DISORDER
     Dosage: AFTER CALCIUM
     Route: 048
     Dates: start: 201109
  15. SINVASCOR [Concomitant]
     Indication: BLOOD CHOLESTEROL ABNORMAL
     Route: 048
     Dates: start: 201109
  16. RETEMIC [Concomitant]
     Indication: URINARY INCONTINENCE
     Route: 048
     Dates: start: 201302
  17. ARAVA [Concomitant]
     Indication: PRODUCT USED FOR UNKNOWN INDICATION
  18. CALCIUM [Concomitant]
     Indication: PRODUCT USED FOR UNKNOWN INDICATION

REACTIONS (8)
  - Pulmonary mass [Unknown]
  - Pharyngitis [Recovered/Resolved]
  - Pain in extremity [Not Recovered/Not Resolved]
  - Pain in extremity [Unknown]
  - Bronchial disorder [Unknown]
  - Injection site pain [Unknown]
  - Gait disturbance [Unknown]
  - Arthralgia [Unknown]
